FAERS Safety Report 22975124 (Version 2)
Quarter: 2023Q4

REPORT INFORMATION
  Report Type: Spontaneous
  Country: US (occurrence: US)
  Receive Date: 20230924
  Receipt Date: 20231006
  Transmission Date: 20240110
  Serious: Yes (Death, Life-Threatening, Hospitalization, Other)
  Sender: FDA-Public Use
  Company Number: US-BoehringerIngelheim-2023-BI-262674

PATIENT
  Age: 73 Year
  Sex: Male

DRUGS (23)
  1. TRADJENTA [Suspect]
     Active Substance: LINAGLIPTIN
     Indication: Diabetes mellitus
     Route: 048
     Dates: start: 20220819
  2. RAMUCIRUMAB [Suspect]
     Active Substance: RAMUCIRUMAB
     Indication: Product used for unknown indication
     Route: 042
  3. ECOTRIN [Concomitant]
     Active Substance: ASPIRIN
     Indication: Prophylaxis
     Route: 048
     Dates: start: 20220928
  4. MARINOL [Concomitant]
     Active Substance: DRONABINOL
     Indication: Cachexia
     Route: 048
     Dates: start: 20230530
  5. AVAPRO [Concomitant]
     Active Substance: IRBESARTAN
     Indication: Hypertension
     Route: 048
     Dates: start: 20221116
  6. AVAPRO [Concomitant]
     Active Substance: IRBESARTAN
     Indication: Diabetic neuropathy
  7. OMEPRAZOLE [Concomitant]
     Active Substance: OMEPRAZOLE
     Indication: Gastrooesophageal reflux disease
     Route: 048
     Dates: start: 20220912
  8. CRESTOR [Concomitant]
     Active Substance: ROSUVASTATIN CALCIUM
     Indication: Hypercholesterolaemia
     Route: 048
     Dates: start: 20220815
  9. COLACE [Concomitant]
     Active Substance: DOCUSATE SODIUM
     Indication: Constipation
     Route: 048
     Dates: start: 20221020
  10. MUCINEX [Concomitant]
     Active Substance: GUAIFENESIN
     Indication: Gastrooesophageal reflux disease
     Route: 048
     Dates: start: 20230530
  11. CHLORHEXIDINE GLUCONATE [Concomitant]
     Active Substance: CHLORHEXIDINE GLUCONATE
     Indication: Tooth extraction
     Route: 061
     Dates: start: 20230816, end: 20230823
  12. DOXYCYCLINE HYCLATE [Concomitant]
     Active Substance: DOXYCYCLINE HYCLATE
     Indication: Tooth extraction
     Route: 048
     Dates: start: 20230816, end: 20230823
  13. CARDIZEM CD [Concomitant]
     Active Substance: DILTIAZEM HYDROCHLORIDE
     Indication: Product used for unknown indication
     Route: 048
  14. TESSALON [Concomitant]
     Active Substance: BENZONATATE
     Indication: Product used for unknown indication
     Route: 048
  15. VITAMIN D3 [Concomitant]
     Active Substance: CHOLECALCIFEROL
     Indication: Product used for unknown indication
     Route: 048
  16. VITAMIN B12 [Concomitant]
     Active Substance: CYANOCOBALAMIN
     Indication: Product used for unknown indication
     Route: 048
  17. Centrum Silver Men [Concomitant]
     Indication: Product used for unknown indication
     Route: 048
  18. PEGFILGRASTIM [Concomitant]
     Active Substance: PEGFILGRASTIM
     Indication: Neutrophil count decreased
     Route: 058
     Dates: start: 20230810
  19. PACLITAXEL [Concomitant]
     Active Substance: PACLITAXEL
     Indication: Product used for unknown indication
     Dosage: 80MG/M2 IV
     Route: 042
  20. TRK-950 [Concomitant]
     Active Substance: TRK-950
     Indication: Product used for unknown indication
     Dosage: 5MG/KG
     Route: 042
  21. ASPIRIN [Concomitant]
     Active Substance: ASPIRIN
     Indication: Product used for unknown indication
     Dates: start: 20220922
  22. CARDIZEM [Concomitant]
     Active Substance: DILTIAZEM HYDROCHLORIDE
     Indication: Tooth extraction
  23. MINERALS\VITAMINS [Concomitant]
     Active Substance: MINERALS\VITAMINS
     Indication: Product used for unknown indication
     Dosage: DAILY

REACTIONS (27)
  - Haemorrhage intracranial [Fatal]
  - Cerebrovascular accident [Unknown]
  - Gastric cancer [Unknown]
  - Metastases to liver [Unknown]
  - Metastases to biliary tract [Unknown]
  - Supraventricular tachycardia [Unknown]
  - Gastrooesophageal reflux disease [Unknown]
  - Cachexia [Unknown]
  - Anaemia [Unknown]
  - Diabetic neuropathy [Unknown]
  - Hypoalbuminaemia [Unknown]
  - Blood alkaline phosphatase increased [Unknown]
  - Aspartate aminotransferase increased [Unknown]
  - Alanine aminotransferase increased [Unknown]
  - Hyperlipidaemia [Unknown]
  - Dysphagia [Unknown]
  - Syncope [Unknown]
  - Orthostatic hypotension [Unknown]
  - Albuminuria [Unknown]
  - Anxiety [Unknown]
  - Diverticulum [Unknown]
  - Insomnia [Unknown]
  - Iron deficiency anaemia [Unknown]
  - Spinal operation [Unknown]
  - Knee operation [Unknown]
  - Rheumatoid arthritis [Unknown]
  - Lymphadenopathy mediastinal [Unknown]

NARRATIVE: CASE EVENT DATE: 20220912
